FAERS Safety Report 6491717-6 (Version None)
Quarter: 2009Q4

REPORT INFORMATION
  Report Type: 
  Country: None (occurrence: None)
  Receive Date: 20091125
  Receipt Date: 20090501
  Transmission Date: 20100525
  Serious: Yes (Hospitalization, Other)
  Sender: FDA-Public Use
  Company Number: 2009BH007819

PATIENT
  Age: 9 Year
  Sex: Female

DRUGS (1)
  1. DIANEAL PD2, ABUM-FLEX CONTAINER [Suspect]
     Indication: PERITONEAL DIALYSIS
     Dosage: IP
     Route: 033
     Dates: start: 20081201

REACTIONS (2)
  - CONSTIPATION [None]
  - PERITONITIS BACTERIAL [None]
